FAERS Safety Report 7431811-6 (Version None)
Quarter: 2011Q2

REPORT INFORMATION
  Report Type: 
  Country: None (occurrence: None)
  Receive Date: 20110422
  Receipt Date: 20110412
  Transmission Date: 20111010
  Serious: Yes (Hospitalization)
  Sender: FDA-Public Use
  Company Number: PHHY2011US23350

PATIENT
  Sex: Male
  Weight: 63 kg

DRUGS (4)
  1. EXJADE [Suspect]
     Indication: MYELOFIBROSIS
     Dosage: 4-500 MG, TABLETS DAILY
     Route: 048
     Dates: start: 20080701
  2. VANCOMYCIN [Concomitant]
  3. LEVAQUIN [Concomitant]
  4. EXJADE [Suspect]
     Dosage: 1500 MG, DAILY
     Route: 048
     Dates: start: 20080903

REACTIONS (11)
  - OSTEOMYELITIS [None]
  - MALNUTRITION [None]
  - ORAL PAIN [None]
  - ARTHRALGIA [None]
  - PREALBUMIN DECREASED [None]
  - STAPHYLOCOCCAL INFECTION [None]
  - ASTHENIA [None]
  - BURSITIS [None]
  - DECREASED APPETITE [None]
  - THROMBOCYTOPENIA [None]
  - ANAEMIA [None]
